FAERS Safety Report 10489156 (Version 1)
Quarter: 2014Q4

REPORT INFORMATION
  Report Type: Spontaneous
  Country: US (occurrence: None)
  Receive Date: 20141001
  Receipt Date: 20141001
  Transmission Date: 20150528
  Serious: Yes (Other)
  Sender: FDA-Public Use
  Company Number: None

PATIENT
  Sex: Male

DRUGS (2)
  1. EXJADE [Suspect]
     Active Substance: DEFERASIROX
     Indication: IRON OVERLOAD
     Dosage: 125MG (TOTAL 625) QD PO?STARTED 5 WEEKS AGO PER PT MOM
     Route: 048
  2. EXJADE [Suspect]
     Active Substance: DEFERASIROX
     Indication: IRON OVERLOAD
     Dosage: 500MG (TOTAL 625) QD PO
     Route: 048

REACTIONS (7)
  - Constipation [None]
  - Hepatic enzyme increased [None]
  - Haematochezia [None]
  - Seizure [None]
  - Diarrhoea [None]
  - Mood swings [None]
  - Anxiety [None]
